FAERS Safety Report 6576874-5 (Version None)
Quarter: 2010Q1

REPORT INFORMATION
  Report Type: 
  Country: None (occurrence: None)
  Receive Date: 20100210
  Receipt Date: 20100208
  Transmission Date: 20100710
  Serious: Yes (Hospitalization)
  Sender: FDA-Public Use
  Company Number: A0843563A

PATIENT
  Age: 57 Year
  Sex: Male
  Weight: 90.9 kg

DRUGS (2)
  1. AVANDIA [Suspect]
     Dosage: 4MG PER DAY
     Route: 048
     Dates: start: 20061127, end: 20070421
  2. AVANDAMET [Suspect]
     Dosage: 1TAB PER DAY
     Route: 048
     Dates: start: 20070511, end: 20071001

REACTIONS (2)
  - CARDIAC DISORDER [None]
  - CORONARY ARTERY DISEASE [None]
